FAERS Safety Report 7965406-2 (Version None)
Quarter: 2011Q4

REPORT INFORMATION
  Report Type: 
  Country: None (occurrence: None)
  Receive Date: 20111208
  Receipt Date: 20111128
  Transmission Date: 20120403
  Serious: Yes (Death)
  Sender: FDA-Public Use
  Company Number: US-MYLANLABS-2011S1024450

PATIENT
  Age: 78 Year
  Sex: Male

DRUGS (10)
  1. PROCHLORPERAZINE MALEATE [Suspect]
  2. SPIRONOLACTONE [Suspect]
  3. HYDROCODONE [Concomitant]
  4. SIMETHICONE [Concomitant]
  5. NIFEDIPINE [Concomitant]
  6. OMEPRAZOLE [Suspect]
  7. GLIPIZIDE [Suspect]
  8. LORAZEPAM [Suspect]
  9. FUROSEMIDE [Suspect]
  10. NITROSTAT [Concomitant]

REACTIONS (1)
  - DEATH [None]
